FAERS Safety Report 13401897 (Version 1)
Quarter: 2017Q2

REPORT INFORMATION
  Report Type: Spontaneous
  Country: US (occurrence: US)
  Receive Date: 20170404
  Receipt Date: 20170404
  Transmission Date: 20170830
  Serious: Yes (Other)
  Sender: FDA-Public Use
  Company Number: US-TEVA-754366USA

PATIENT
  Sex: Male

DRUGS (1)
  1. METFORMIN HYDROCHLORIDE EXTENDED RELEASE TABLETS [Suspect]
     Active Substance: METFORMIN HYDROCHLORIDE
     Indication: DIABETES MELLITUS
     Route: 065
     Dates: start: 2013, end: 2014

REACTIONS (4)
  - Urinary retention [Unknown]
  - Abdominal distension [Unknown]
  - Somnolence [Unknown]
  - Memory impairment [Unknown]

NARRATIVE: CASE EVENT DATE: 2013
